FAERS Safety Report 10426327 (Version 1)
Quarter: 2014Q3

REPORT INFORMATION
  Report Type: Spontaneous
  Country: US (occurrence: None)
  Receive Date: 20140902
  Receipt Date: 20140902
  Transmission Date: 20150326
  Serious: Yes (Death)
  Sender: FDA-Public Use
  Company Number: None

PATIENT
  Age: 72 Year
  Sex: Male

DRUGS (1)
  1. EXJADE [Suspect]
     Active Substance: DEFERASIROX
     Indication: IRON OVERLOAD
     Dosage: 3 TABLETS  QD  ORAL
     Route: 048
     Dates: start: 20140617, end: 20140828

REACTIONS (1)
  - Leukaemia [None]

NARRATIVE: CASE EVENT DATE: 20140828
